FAERS Safety Report 14976667 (Version 9)
Quarter: 2019Q2

REPORT INFORMATION
  Report Type: Spontaneous
  Country: US (occurrence: US)
  Receive Date: 20180605
  Receipt Date: 20190626
  Transmission Date: 20190711
  Serious: Yes (Hospitalization)
  Sender: FDA-Public Use
  Company Number: US-ACTELION-A-NJ2018-172666

PATIENT
  Age: 62 Year
  Sex: Male

DRUGS (4)
  1. REMODULIN [Suspect]
     Active Substance: TREPROSTINIL
     Indication: PRODUCT USED FOR UNKNOWN INDICATION
     Dosage: UNK
     Route: 065
  2. HEPARIN [Concomitant]
     Active Substance: HEPARIN SODIUM
  3. OPSUMIT [Suspect]
     Active Substance: MACITENTAN
     Indication: PULMONARY ARTERIAL HYPERTENSION
     Dosage: 10 MG, QD
     Route: 048
     Dates: start: 20180406
  4. OXYGEN. [Concomitant]
     Active Substance: OXYGEN

REACTIONS (18)
  - Gout [Unknown]
  - Oxygen consumption increased [Not Recovered/Not Resolved]
  - Dizziness [Unknown]
  - Abdominal distension [Unknown]
  - Catheter site haemorrhage [Unknown]
  - Device issue [Unknown]
  - Nasal congestion [Not Recovered/Not Resolved]
  - Pain in extremity [Unknown]
  - Headache [Unknown]
  - Diarrhoea [Unknown]
  - Fatigue [Unknown]
  - Feeling abnormal [Not Recovered/Not Resolved]
  - Hyperaesthesia teeth [Unknown]
  - Nausea [Unknown]
  - Catheter site irritation [Unknown]
  - Loss of personal independence in daily activities [Not Recovered/Not Resolved]
  - Catheter management [Unknown]
  - Dyspnoea [Unknown]

NARRATIVE: CASE EVENT DATE: 2018
